FAERS Safety Report 14538379 (Version 1)
Quarter: 2018Q1

REPORT INFORMATION
  Report Type: Spontaneous
  Country: NL (occurrence: NL)
  Receive Date: 20180216
  Receipt Date: 20180216
  Transmission Date: 20180509
  Serious: Yes (Other)
  Sender: FDA-Public Use
  Company Number: NL-AMGEN-NLDSP2017187559

PATIENT
  Age: 72 Year
  Weight: 75 kg

DRUGS (8)
  1. BLINCYTO [Suspect]
     Active Substance: BLINATUMOMAB
     Dosage: 2.25 MCG, QD
     Route: 042
     Dates: start: 20171215
  2. BLINCYTO [Suspect]
     Active Substance: BLINATUMOMAB
     Dosage: 4.5 MCG, QD
     Route: 042
     Dates: start: 20171215
  3. BLINCYTO [Suspect]
     Active Substance: BLINATUMOMAB
     Dosage: 9 MCG, QD
     Route: 042
     Dates: start: 20171216
  4. RASBURICASE [Concomitant]
     Active Substance: RASBURICASE
     Dosage: 3 MG, UNK
     Route: 042
     Dates: start: 201712
  5. DEXAMETHASONE. [Concomitant]
     Active Substance: DEXAMETHASONE
     Dosage: 10 MG/M2, UNK
  6. DEXAMETHASONE. [Concomitant]
     Active Substance: DEXAMETHASONE
     Dosage: 20 MG, UNK
     Route: 042
     Dates: start: 201712
  7. BLINCYTO [Suspect]
     Active Substance: BLINATUMOMAB
     Indication: B PRECURSOR TYPE ACUTE LEUKAEMIA
     Dosage: 9 MCG, QD
     Route: 042
     Dates: start: 20171213
  8. RASBURICASE [Concomitant]
     Active Substance: RASBURICASE
     Dosage: 3 MG, ONE TIME DOSE
     Route: 042

REACTIONS (6)
  - Pyrexia [Recovered/Resolved]
  - Tachycardia [Unknown]
  - Hepatic enzyme increased [Unknown]
  - Blood lactate dehydrogenase increased [Unknown]
  - Tachypnoea [Unknown]
  - Confusional state [Recovered/Resolved]

NARRATIVE: CASE EVENT DATE: 201712
